FAERS Safety Report 23970238 (Version 3)
Quarter: 2024Q3

REPORT INFORMATION
  Report Type: Spontaneous
  Country: US (occurrence: US)
  Receive Date: 20240613
  Receipt Date: 20240708
  Transmission Date: 20241016
  Serious: No
  Sender: Unknown Manufacturer
  Company Number: US-MTPC-MTDA2024-0012155

PATIENT
  Sex: Female

DRUGS (2)
  1. RADICAVA ORS [Suspect]
     Active Substance: EDARAVONE
     Indication: Amyotrophic lateral sclerosis
     Dosage: 5 MILLILITER, QD FOR 10 DAYS OUT OF 14 DAYS, FOLLOWED BY A 14-DAY DRUG FREE PERIOD
     Route: 048
     Dates: start: 20240501
  2. RADICAVA ORS [Suspect]
     Active Substance: EDARAVONE
     Indication: Amyotrophic lateral sclerosis
     Dosage: 5 MILLILITER, QD FOR 10 DAYS OUT OF 14 DAYS, FOLLOWED BY A 14-DAY DRUG FREE PERIOD
     Route: 048
     Dates: start: 20240501

REACTIONS (1)
  - Asthenia [Not Recovered/Not Resolved]
